FAERS Safety Report 6398917-4 (Version None)
Quarter: 2009Q4

REPORT INFORMATION
  Report Type: 
  Country: None (occurrence: None)
  Receive Date: 20091013
  Receipt Date: 20091007
  Transmission Date: 20100525
  Serious: Yes (Death)
  Sender: FDA-Public Use
  Company Number: US-BAYER-200915244BCC

PATIENT

DRUGS (1)
  1. RID LICE KILLING SHAMPOO [Suspect]
     Indication: LICE INFESTATION
     Route: 065

REACTIONS (1)
  - LEUKAEMIA [None]
